FAERS Safety Report 24019896 (Version 1)
Quarter: 2024Q2

REPORT INFORMATION
  Report Type: Other
  Country: JP (occurrence: JP)
  Receive Date: 20240627
  Receipt Date: 20240627
  Transmission Date: 20240716
  Serious: Yes (Life-Threatening, Hospitalization, Other)
  Sender: FDA-Public Use
  Company Number: JP-Merck Healthcare KGaA-2024033566

PATIENT
  Age: 8 Decade
  Sex: Male

DRUGS (1)
  1. METGLUCO [Suspect]
     Active Substance: METFORMIN HYDROCHLORIDE
     Indication: Product used for unknown indication
     Route: 048

REACTIONS (6)
  - Lactic acidosis [Recovering/Resolving]
  - Renal impairment [Unknown]
  - Gastrointestinal necrosis [Recovering/Resolving]
  - Toxicity to various agents [Unknown]
  - Vomiting [Unknown]
  - Diarrhoea [Unknown]
